FAERS Safety Report 7590138-2 (Version None)
Quarter: 2011Q3

REPORT INFORMATION
  Report Type: 
  Country: None (occurrence: None)
  Receive Date: 20110705
  Receipt Date: 20110622
  Transmission Date: 20111222
  Serious: Yes (Other)
  Sender: FDA-Public Use
  Company Number: B0730597A

PATIENT

DRUGS (1)
  1. LAPATINIB [Suspect]
     Dosage: 1250MG PER DAY
     Route: 048
     Dates: start: 20090625, end: 20090930

REACTIONS (1)
  - PALMAR-PLANTAR ERYTHRODYSAESTHESIA SYNDROME [None]
